FAERS Safety Report 8453891-1 (Version None)
Quarter: 2012Q2

REPORT INFORMATION
  Report Type: 
  Country: None (occurrence: None)
  Receive Date: 20120620
  Receipt Date: 20120618
  Transmission Date: 20120825
  Serious: Yes (Hospitalization, Other)
  Sender: FDA-Public Use
  Company Number: US-TEVA-338048USA

PATIENT
  Age: 78 Year
  Sex: Female

DRUGS (8)
  1. SOTALOL HCL [Concomitant]
  2. WARFARIN SODIUM [Suspect]
     Indication: ATRIAL FIBRILLATION
     Dosage: 5 MILLIGRAM;
     Dates: start: 20080101, end: 20110904
  3. DILTIAZEM HYDROCHOLORIDE [Concomitant]
     Dosage: 38 MILLIGRAM;
  4. DOFETILIDE [Suspect]
     Indication: ATRIAL FIBRILLATION
     Dosage: 1 MILLIGRAM;
     Route: 048
     Dates: start: 20081101
  5. VANCOMYCIN [Suspect]
  6. UNSPECIFIED MEDICATION [Concomitant]
     Indication: THYROID DISORDER
  7. LISINOPRIL [Concomitant]
  8. METOPROLOL [Concomitant]

REACTIONS (14)
  - RECTAL HAEMORRHAGE [None]
  - BRAIN INJURY [None]
  - APPARENT DEATH [None]
  - STAPHYLOCOCCAL INFECTION [None]
  - RESPIRATORY ARREST [None]
  - KNEE ARTHROPLASTY [None]
  - ABDOMINAL STRANGULATED HERNIA [None]
  - SURGERY [None]
  - BREAST MASS [None]
  - HAEMARTHROSIS [None]
  - HYPOACUSIS [None]
  - OEDEMA [None]
  - LOSS OF CONSCIOUSNESS [None]
  - BENIGN BREAST NEOPLASM [None]
